FAERS Safety Report 6978002-0 (Version None)
Quarter: 2010Q3

REPORT INFORMATION
  Report Type: 
  Country: None (occurrence: None)
  Receive Date: 20100913
  Receipt Date: 20100907
  Transmission Date: 20110219
  Serious: No
  Sender: FDA-Public Use
  Company Number: US-PFIZER INC-2010113610

PATIENT
  Sex: Female
  Weight: 62.585 kg

DRUGS (6)
  1. SERTRALINE HYDROCHLORIDE [Suspect]
     Indication: DIARRHOEA
     Dosage: 25 MG, DAILY
     Route: 048
     Dates: start: 20100801
  2. BENICAR [Concomitant]
     Dosage: UNK
  3. METOPROLOL [Concomitant]
     Dosage: UNK
  4. ACYCLOVIR [Concomitant]
     Indication: HERPES ZOSTER
     Dosage: UNK
  5. DIGOXIN [Concomitant]
     Dosage: UNK
  6. AMLODIPINE [Concomitant]
     Dosage: UNK

REACTIONS (1)
  - DIARRHOEA [None]
